FAERS Safety Report 19933359 (Version 3)
Quarter: 2021Q4

REPORT INFORMATION
  Report Type: Spontaneous
  Country: US (occurrence: US)
  Receive Date: 20211008
  Receipt Date: 20211119
  Transmission Date: 20220303
  Serious: Yes (Hospitalization, Other)
  Sender: FDA-Public Use
  Company Number: US-PFIZER INC-202101276179

PATIENT
  Age: 58 Year
  Sex: Female
  Weight: 88.45 kg

DRUGS (1)
  1. PREMARIN [Suspect]
     Active Substance: ESTROGENS, CONJUGATED
     Indication: Hormone therapy
     Dosage: 20 MG, 1X/DAY
     Dates: start: 20210901

REACTIONS (4)
  - Vulvovaginal mycotic infection [Recovered/Resolved]
  - Vulvovaginal burning sensation [Unknown]
  - Off label use [Unknown]
  - Off label use [Unknown]

NARRATIVE: CASE EVENT DATE: 20210901
